FAERS Safety Report 8250656-0 (Version None)
Quarter: 2012Q2

REPORT INFORMATION
  Report Type: 
  Country: None (occurrence: None)
  Receive Date: 20120402
  Receipt Date: 20120323
  Transmission Date: 20120825
  Serious: Yes (Hospitalization, Other)
  Sender: FDA-Public Use
  Company Number: US-ASTRAZENECA-2010SE57907

PATIENT
  Age: 58 Year
  Sex: Female

DRUGS (3)
  1. NEXIUM [Suspect]
     Route: 048
  2. RADIATION [Suspect]
  3. PRILOSEC [Suspect]
     Route: 048

REACTIONS (24)
  - OESOPHAGEAL CARCINOMA [None]
  - MUSCULAR WEAKNESS [None]
  - NAUSEA [None]
  - LUNG NEOPLASM MALIGNANT [None]
  - CONVULSION [None]
  - OESOPHAGEAL HAEMORRHAGE [None]
  - CATARACT [None]
  - BRONCHITIS CHRONIC [None]
  - BONE CANCER METASTATIC [None]
  - HAEMOPTYSIS [None]
  - SKIN CANCER [None]
  - TOOTH ABSCESS [None]
  - LACRIMAL ATROPHY [None]
  - ABDOMINAL DISCOMFORT [None]
  - SALIVARY GLAND ATROPHY [None]
  - METASTASIS [None]
  - HAND DEFORMITY [None]
  - NEOPLASM MALIGNANT [None]
  - PULMONARY FIBROSIS [None]
  - GRAND MAL CONVULSION [None]
  - BRAIN CANCER METASTATIC [None]
  - DENTAL CARIES [None]
  - INTENTIONAL DRUG MISUSE [None]
  - DRUG INEFFECTIVE [None]
